FAERS Safety Report 10003637 (Version 1)
Quarter: 2014Q1

REPORT INFORMATION
  Report Type: Spontaneous
  Country: US (occurrence: US)
  Receive Date: 20140312
  Receipt Date: 20140312
  Transmission Date: 20141002
  Serious: Yes (Hospitalization, Other)
  Sender: FDA-Public Use
  Company Number: US-ABBVIE-13P-163-1128396-00

PATIENT
  Sex: Male

DRUGS (3)
  1. DIVALPROEX SODIUM [Suspect]
     Indication: EPILEPSY
  2. DEPAKOTE ER [Suspect]
     Indication: EPILEPSY
  3. DILANTIN [Concomitant]
     Indication: EPILEPSY

REACTIONS (3)
  - Hospitalisation [Unknown]
  - Convulsion [Unknown]
  - Convulsion [Unknown]
